FAERS Safety Report 7878429-9 (Version None)
Quarter: 2011Q4

REPORT INFORMATION
  Report Type: 
  Country: None (occurrence: None)
  Receive Date: 20111028
  Receipt Date: 20111013
  Transmission Date: 20120403
  Serious: Yes (Hospitalization)
  Sender: FDA-Public Use
  Company Number: DSA_47886_2011

PATIENT
  Age: 82 Year
  Sex: Male

DRUGS (9)
  1. TAMSULOSIN HYDROCHLORIDE [Concomitant]
  2. FINASTERIDE [Concomitant]
  3. ENALAPRIL MALEATE [Suspect]
     Indication: PRODUCT USED FOR UNKNOWN INDICATION
     Dosage: (DF ORAL)
     Route: 048
  4. AXITINIB [Suspect]
     Indication: METASTATIC RENAL CELL CARCINOMA
     Dosage: (5 MG BID ORAL)
     Route: 048
     Dates: start: 20100929, end: 20110701
  5. ACETAMINOPHEN AND TRAMADOL HCL [Concomitant]
  6. FORTIMEL [Concomitant]
  7. LEVOTHROID [Concomitant]
  8. METHYLPREDNISOLONE [Concomitant]
  9. PANTOPRAZOLE [Concomitant]

REACTIONS (3)
  - HYPOTENSION [None]
  - MEDICATION ERROR [None]
  - FALL [None]
